FAERS Safety Report 15937300 (Version 2)
Quarter: 2019Q3

REPORT INFORMATION
  Report Type: Spontaneous
  Country: US (occurrence: US)
  Receive Date: 20190208
  Receipt Date: 20190820
  Transmission Date: 20191004
  Serious: No
  Sender: FDA-Public Use
  Company Number: US-MYLANLABS-2019M1007642

PATIENT
  Age: 56 Year
  Sex: Female
  Weight: 58 kg

DRUGS (4)
  1. ESTRADIOL TRANSDERMAL SYSTEM [Suspect]
     Active Substance: ESTRADIOL
     Dosage: 0.05 MILLIGRAM, Q2W
     Route: 062
  2. PROGESTERONE. [Concomitant]
     Active Substance: PROGESTERONE
  3. ESTRADIOL TRANSDERMAL SYSTEM [Suspect]
     Active Substance: ESTRADIOL
     Indication: MENOPAUSE
     Dosage: 0.075 MILLIGRAM, Q2W
     Route: 062
     Dates: start: 20181228
  4. ESTRADIOL. [Suspect]
     Active Substance: ESTRADIOL
     Indication: MENOPAUSE

REACTIONS (5)
  - Therapeutic product effect increased [Recovered/Resolved]
  - Product adhesion issue [Unknown]
  - Application site erythema [Recovering/Resolving]
  - Breast tenderness [Recovered/Resolved]
  - Pruritus [Recovering/Resolving]

NARRATIVE: CASE EVENT DATE: 20181228
